FAERS Safety Report 16450235 (Version 1)
Quarter: 2019Q2

REPORT INFORMATION
  Report Type: Spontaneous
  Country: GR (occurrence: GR)
  Receive Date: 20190619
  Receipt Date: 20190619
  Transmission Date: 20190711
  Serious: Yes (Hospitalization)
  Sender: FDA-Public Use
  Company Number: GR-GLAXOSMITHKLINE-GR2019109940

PATIENT
  Age: 16 Year
  Sex: Male
  Weight: 102 kg

DRUGS (2)
  1. KLARICID [Concomitant]
     Active Substance: CLARITHROMYCIN
     Indication: INFLUENZA
     Dosage: 1 DF, BID
     Route: 048
     Dates: start: 20190125, end: 20190130
  2. SERETIDE [Suspect]
     Active Substance: FLUTICASONE PROPIONATE\SALMETEROL XINAFOATE
     Indication: INFLUENZA
     Dosage: 1 DF, BID
     Route: 055
     Dates: start: 20190125, end: 20190130

REACTIONS (1)
  - Abdominal wall disorder [Not Recovered/Not Resolved]

NARRATIVE: CASE EVENT DATE: 20190130
